FAERS Safety Report 16393975 (Version 1)
Quarter: 2019Q2

REPORT INFORMATION
  Report Type: Spontaneous
  Country: GB (occurrence: GB)
  Receive Date: 20190605
  Receipt Date: 20190605
  Transmission Date: 20190711
  Serious: Yes (Hospitalization)
  Sender: FDA-Public Use
  Company Number: GB-PFIZER INC-2019235761

PATIENT
  Sex: Female

DRUGS (1)
  1. LYRICA [Suspect]
     Active Substance: PREGABALIN
     Dosage: UNK

REACTIONS (4)
  - Drug dependence [Unknown]
  - Disinhibition [Unknown]
  - Delusional disorder, unspecified type [Unknown]
  - Liver disorder [Unknown]

NARRATIVE: CASE EVENT DATE: 2013
